FAERS Safety Report 14651098 (Version 1)
Quarter: 2018Q1

REPORT INFORMATION
  Report Type: Spontaneous
  Country: CA (occurrence: CA)
  Receive Date: 20180316
  Receipt Date: 20180316
  Transmission Date: 20180509
  Serious: Yes (Disabling)
  Sender: FDA-Public Use
  Company Number: CA-TEVA-2018-CA-868673

PATIENT
  Age: 2 Year
  Sex: Male
  Weight: 11 kg

DRUGS (2)
  1. CLARITHROMYCIN. [Suspect]
     Active Substance: CLARITHROMYCIN
     Indication: OTITIS MEDIA
     Dosage: 175 MILLIGRAM DAILY;
     Route: 048
  2. MOTRIN [Concomitant]
     Active Substance: IBUPROFEN

REACTIONS (4)
  - Psychomotor hyperactivity [Recovered/Resolved]
  - Depersonalisation/derealisation disorder [Recovered/Resolved]
  - Euphoric mood [Recovered/Resolved]
  - Aggression [Recovered/Resolved]
